FAERS Safety Report 24422190 (Version 1)
Quarter: 2024Q4

REPORT INFORMATION
  Report Type: Spontaneous
  Country: CA (occurrence: CA)
  Receive Date: 20241010
  Receipt Date: 20241010
  Transmission Date: 20250115
  Serious: Yes (Hospitalization)
  Sender: PFIZER
  Company Number: CA-PFIZER INC-PV202400130546

PATIENT
  Age: 57 Year
  Sex: Female

DRUGS (1)
  1. INOTUZUMAB OZOGAMICIN [Suspect]
     Active Substance: INOTUZUMAB OZOGAMICIN
     Indication: B-cell type acute leukaemia
     Dosage: 0.8 MG/M2 (FIRST DOSE)
     Route: 042

REACTIONS (2)
  - Bone marrow necrosis [Unknown]
  - Inflammation [Recovered/Resolved]
